FAERS Safety Report 5023803-1 (Version None)
Quarter: 2006Q2

REPORT INFORMATION
  Report Type: 
  Country: None (occurrence: None)
  Receive Date: 20060606
  Receipt Date: 20060530
  Transmission Date: 20061013
  Serious: Yes (Other)
  Sender: FDA-Public Use
  Company Number: 145987USA

PATIENT
  Age: 34 Year
  Sex: Male

DRUGS (1)
  1. ORAP [Suspect]
     Indication: TOURETTE'S DISORDER
     Dosage: 1 MILLIGRAM DAILY ORAL
     Route: 048
     Dates: start: 19820101, end: 20010920

REACTIONS (8)
  - BIPOLAR DISORDER [None]
  - DEPRESSION [None]
  - FIBROMYALGIA [None]
  - PARANOIA [None]
  - PARKINSONISM [None]
  - PSYCHOTIC DISORDER [None]
  - RESTLESS LEGS SYNDROME [None]
  - SUICIDE ATTEMPT [None]
